FAERS Safety Report 5793559-3 (Version None)
Quarter: 2008Q2

REPORT INFORMATION
  Report Type: 
  Country: None (occurrence: None)
  Receive Date: 20080627
  Receipt Date: 20080619
  Transmission Date: 20081010
  Serious: Yes (Life-Threatening)
  Sender: FDA-Public Use
  Company Number: JP-ASTRAZENECA-2008AP04743

PATIENT
  Age: 75 Year
  Sex: Male

DRUGS (3)
  1. CASODEX [Suspect]
     Indication: PROSTATE CANCER
     Route: 048
     Dates: start: 20080507, end: 20080612
  2. ZOLADEX [Suspect]
     Indication: PROSTATE CANCER
     Route: 058
     Dates: start: 20080507, end: 20080604
  3. ALLOPURINOL [Suspect]
     Dosage: DOSE UNKNOWN
     Route: 048
     Dates: start: 20080610, end: 20080612

REACTIONS (1)
  - INTERSTITIAL LUNG DISEASE [None]
